FAERS Safety Report 9801259 (Version 3)
Quarter: 2014Q2

REPORT INFORMATION
  Report Type: Spontaneous
  Country: US (occurrence: US)
  Receive Date: 20140107
  Receipt Date: 20140407
  Transmission Date: 20141212
  Serious: No
  Sender: FDA-Public Use
  Company Number: US-GLAXOSMITHKLINE-A0957394A

PATIENT
  Age: 37 Year
  Sex: Female
  Weight: 72.64 kg

DRUGS (13)
  1. BENLYSTA [Suspect]
     Indication: SYSTEMIC LUPUS ERYTHEMATOSUS
     Dosage: 120MG EVERY 28 DAYS
     Route: 042
     Dates: start: 20111115
  2. BENADRYL [Suspect]
  3. PAIN MEDICATION [Suspect]
  4. PLAQUENIL [Concomitant]
  5. IMURAN [Concomitant]
     Dosage: 100MG PER DAY
  6. MEDROL [Concomitant]
     Dates: start: 20111114, end: 20111119
  7. DIAMOX [Concomitant]
     Indication: DIURETIC THERAPY
  8. POTASSIUM CHLORIDE [Concomitant]
  9. CELEXA [Concomitant]
  10. RELPAX [Concomitant]
     Indication: MIGRAINE
  11. FLEXERIL [Concomitant]
  12. NORCO [Concomitant]
     Indication: PAIN
  13. ZOFRAN [Concomitant]
     Indication: NAUSEA

REACTIONS (10)
  - Erythema [Recovered/Resolved]
  - Hypersensitivity [Recovered/Resolved]
  - Anxiety [Recovered/Resolved]
  - Diarrhoea [Recovered/Resolved]
  - Headache [Not Recovered/Not Resolved]
  - Urticaria [Recovered/Resolved]
  - Pruritus [Recovered/Resolved]
  - Surgery [Unknown]
  - Nausea [Recovered/Resolved]
  - Dizziness [Recovered/Resolved]
